FAERS Safety Report 20493752 (Version 7)
Quarter: 2022Q2

REPORT INFORMATION
  Report Type: Report from Study
  Country: CA (occurrence: CA)
  Receive Date: 20220221
  Receipt Date: 20220523
  Transmission Date: 20220721
  Serious: Yes (Other)
  Sender: FDA-Public Use
  Company Number: CA-JNJFOC-20220225514

PATIENT
  Age: 53 Year
  Sex: Male

DRUGS (3)
  1. TREMFYA [Suspect]
     Active Substance: GUSELKUMAB
     Indication: Psoriasis
     Route: 058
     Dates: start: 20210714
  2. CEFUROXIME [Concomitant]
     Active Substance: CEFUROXIME
     Route: 065
  3. PREDNISONE [Concomitant]
     Active Substance: PREDNISONE
     Route: 065

REACTIONS (5)
  - Pneumonia [Recovering/Resolving]
  - Knee operation [Unknown]
  - Ear infection [Recovering/Resolving]
  - Psoriasis [Not Recovered/Not Resolved]
  - Infection [Unknown]
